FAERS Safety Report 4475755-0 (Version None)
Quarter: 2004Q4

REPORT INFORMATION
  Report Type: 
  Country: None (occurrence: None)
  Receive Date: 20041015
  Receipt Date: 20031208
  Transmission Date: 20050328
  Serious: Yes (Hospitalization)
  Sender: FDA-Public Use
  Company Number: US-GLAXOSMITHKLINE-A0442359A

PATIENT
  Age: 21 Year
  Sex: Female

DRUGS (5)
  1. LAMICTAL [Suspect]
     Indication: BIPOLAR DISORDER
     Route: 048
     Dates: start: 20030825
  2. DEPAKOTE [Concomitant]
  3. ABILIFY [Concomitant]
  4. WELLBUTRIN [Concomitant]
  5. MINOCYCLINE HCL [Concomitant]

REACTIONS (14)
  - ABNORMAL DREAMS [None]
  - ALANINE AMINOTRANSFERASE INCREASED [None]
  - ALOPECIA [None]
  - BLISTER [None]
  - DEPRESSION [None]
  - DRUG LEVEL INCREASED [None]
  - HOSTILITY [None]
  - LEGAL PROBLEM [None]
  - MANIA [None]
  - MUSCLE CRAMP [None]
  - ORAL MUCOSAL BLISTERING [None]
  - POLYURIA [None]
  - SUICIDE ATTEMPT [None]
  - THINKING ABNORMAL [None]
